FAERS Safety Report 5264753-5 (Version None)
Quarter: 2007Q1

REPORT INFORMATION
  Report Type: 
  Country: None (occurrence: None)
  Receive Date: 20061117
  Receipt Date: 20060612
  Transmission Date: 20070707
  Serious: Yes (Other)
  Sender: FDA-Public Use
  Company Number: US-JNJFOC-20060405807

PATIENT
  Age: 81 Year
  Sex: Male

DRUGS (6)
  1. LEVAQUIN [Suspect]
     Indication: BRONCHITIS
     Dosage: SEE IMAGE
     Route: 048
     Dates: start: 20060415, end: 20060416
  2. LEVAQUIN [Suspect]
     Indication: PNEUMONIA
     Dosage: SEE IMAGE
     Route: 048
     Dates: start: 20060415, end: 20060416
  3. LEVAQUIN [Suspect]
     Indication: BRONCHITIS
     Dosage: SEE IMAGE
     Route: 048
     Dates: start: 20060417, end: 20060417
  4. LEVAQUIN [Suspect]
     Indication: PNEUMONIA
     Dosage: SEE IMAGE
     Route: 048
     Dates: start: 20060417, end: 20060417
  5. SINEMET [Concomitant]
  6. LISINOPRIL [Concomitant]

REACTIONS (2)
  - BLOOD BILIRUBIN INCREASED [None]
  - HEPATIC ENZYME INCREASED [None]
